FAERS Safety Report 25118078 (Version 2)
Quarter: 2025Q1

REPORT INFORMATION
  Report Type: Spontaneous
  Country: EG (occurrence: EG)
  Receive Date: 20250325
  Receipt Date: 20250327
  Transmission Date: 20250409
  Serious: Yes (Death, Hospitalization, Other)
  Sender: SANDOZ
  Company Number: EG-SANDOZ-SDZ2025EG018005

PATIENT
  Age: 11 Year
  Sex: Male
  Weight: 36 kg

DRUGS (2)
  1. CEFTRIAXONE [Suspect]
     Active Substance: CEFTRIAXONE
     Indication: Otitis media
     Route: 030
     Dates: start: 20250319
  2. CEFTRIAXONE [Suspect]
     Active Substance: CEFTRIAXONE
     Indication: Tonsillitis

REACTIONS (8)
  - Multiple organ dysfunction syndrome [Fatal]
  - Septic shock [Fatal]
  - Coma [Fatal]
  - Pneumonia [Fatal]
  - Meningitis [Fatal]
  - Bacterial infection [Fatal]
  - Respiratory failure [Fatal]
  - Cardiac arrest [Fatal]

NARRATIVE: CASE EVENT DATE: 20250319
